FAERS Safety Report 6556465-2 (Version None)
Quarter: 2010Q1

REPORT INFORMATION
  Report Type: 
  Country: None (occurrence: None)
  Receive Date: 20100125
  Receipt Date: 20100121
  Transmission Date: 20100710
  Serious: Yes (Death)
  Sender: FDA-Public Use
  Company Number: 2010SP004339

PATIENT
  Age: 77 Year
  Sex: Male

DRUGS (6)
  1. CLARITIN [Suspect]
     Indication: DRUG USE FOR UNKNOWN INDICATION
     Dosage: 10 MG; QD; PO
     Route: 048
     Dates: start: 20070111, end: 20090615
  2. PIRESPA           (PIRFENIDONE)          (OTHER RESPIRATORY SYSTEM PRO [Suspect]
     Indication: IDIOPATHIC PULMONARY FIBROSIS
     Dosage: 200 MG; TID; PO, 400 MG; TID; PO, 600 MG; TID; PO
     Route: 048
     Dates: start: 20090330, end: 20090615
  3. PIRESPA           (PIRFENIDONE)          (OTHER RESPIRATORY SYSTEM PRO [Suspect]
     Indication: IDIOPATHIC PULMONARY FIBROSIS
     Dosage: 200 MG; TID; PO, 400 MG; TID; PO, 600 MG; TID; PO
     Route: 048
     Dates: start: 20090302
  4. PIRESPA           (PIRFENIDONE)          (OTHER RESPIRATORY SYSTEM PRO [Suspect]
     Indication: IDIOPATHIC PULMONARY FIBROSIS
     Dosage: 200 MG; TID; PO, 400 MG; TID; PO, 600 MG; TID; PO
     Route: 048
     Dates: start: 20090316
  5. BASEN [Concomitant]
  6. EUGLUCON [Concomitant]

REACTIONS (3)
  - HEAD INJURY [None]
  - IDIOPATHIC PULMONARY FIBROSIS [None]
  - ROAD TRAFFIC ACCIDENT [None]
